FAERS Safety Report 6343556-4 (Version None)
Quarter: 2009Q3

REPORT INFORMATION
  Report Type: 
  Country: None (occurrence: None)
  Receive Date: 20090908
  Receipt Date: 20090827
  Transmission Date: 20100115
  Serious: Yes (Other)
  Sender: FDA-Public Use
  Company Number: FR-PFIZER INC-2009192339

PATIENT
  Age: 4 Year

DRUGS (2)
  1. ZARONTIN [Suspect]
     Indication: EPILEPSY
     Dosage: UNK
     Route: 048
     Dates: start: 20090304
  2. VALPROIC ACID [Suspect]
     Indication: EPILEPSY
     Dosage: 500 MG, 1X/DAY
     Route: 048

REACTIONS (2)
  - ASTHENIA [None]
  - URINARY INCONTINENCE [None]
